FAERS Safety Report 10503730 (Version 1)
Quarter: 2014Q4

REPORT INFORMATION
  Report Type: Report from Study
  Country: CA (occurrence: CA)
  Receive Date: 20141008
  Receipt Date: 20141008
  Transmission Date: 20150528
  Serious: Yes (Death)
  Sender: FDA-Public Use
  Company Number: CA-AMGEN-CANSL2014076053

PATIENT
  Age: 61 Year
  Sex: Male

DRUGS (1)
  1. SENSIPAR [Suspect]
     Active Substance: CINACALCET HYDROCHLORIDE
     Indication: NEPHROPATHY
     Dosage: 30 MG, QD
     Route: 065
     Dates: start: 20091020

REACTIONS (1)
  - Death [Fatal]
